FAERS Safety Report 8177979-8 (Version None)
Quarter: 2012Q1

REPORT INFORMATION
  Report Type: 
  Country: None (occurrence: None)
  Receive Date: 20120126
  Receipt Date: 20111212
  Transmission Date: 20120608
  Serious: No
  Sender: FDA-Public Use
  Company Number: PHEH2011US011518

PATIENT
  Age: 7 Year
  Sex: Male

DRUGS (4)
  1. DEPAKOTE [Concomitant]
  2. SABRIL [Concomitant]
  3. LAMICTAL [Concomitant]
  4. AFINITOR [Suspect]
     Indication: ASTROCYTOMA, LOW GRADE
     Dosage: 5 MG, DAILY
     Dates: start: 20111026, end: 20111212

REACTIONS (2)
  - GASTROENTERITIS VIRAL [None]
  - COUGH [None]
